FAERS Safety Report 6997042-9 (Version None)
Quarter: 2010Q3

REPORT INFORMATION
  Report Type: 
  Country: None (occurrence: None)
  Receive Date: 20100918
  Receipt Date: 20090901
  Transmission Date: 20110219
  Serious: No
  Sender: FDA-Public Use
  Company Number: US-WYE-H10800809

PATIENT
  Sex: Female
  Weight: 44.49 kg

DRUGS (6)
  1. EFFEXOR XR [Suspect]
     Indication: DEPRESSION
     Route: 048
     Dates: start: 20090829
  2. RELPAX [Concomitant]
  3. THYROID TAB [Concomitant]
  4. MAXALT [Concomitant]
  5. TOPAMAX [Concomitant]
  6. PROPRANOLOL [Concomitant]

REACTIONS (4)
  - CONDITION AGGRAVATED [None]
  - HALO VISION [None]
  - NAUSEA [None]
  - SOMNOLENCE [None]
